FAERS Safety Report 8374489-X (Version None)
Quarter: 2012Q2

REPORT INFORMATION
  Report Type: 
  Country: None (occurrence: None)
  Receive Date: 20120521
  Receipt Date: 20120515
  Transmission Date: 20120825
  Serious: Yes (Other)
  Sender: FDA-Public Use
  Company Number: US-INCYTE CORPORATION-2012IN000478

PATIENT
  Sex: Female
  Weight: 85.714 kg

DRUGS (4)
  1. JAKAFI [Suspect]
     Dosage: 10 MG, BID
     Route: 048
     Dates: start: 20120424
  2. JAKAFI [Suspect]
     Dosage: 10 MG, BID
     Route: 048
     Dates: start: 20120327, end: 20120410
  3. ANTIHYPERTENSIVES [Concomitant]
  4. JAKAFI [Suspect]
     Indication: MYELOFIBROSIS
     Dosage: 20 MG, BID
     Route: 048
     Dates: start: 20120218, end: 20120327

REACTIONS (2)
  - DYSURIA [None]
  - PANCYTOPENIA [None]
